FAERS Safety Report 5133188-8 (Version None)
Quarter: 2006Q4

REPORT INFORMATION
  Report Type: 
  Country: None (occurrence: None)
  Receive Date: 20061018
  Receipt Date: 20061002
  Transmission Date: 20070319
  Serious: Yes (Other)
  Sender: FDA-Public Use
  Company Number: 8019398

PATIENT
  Age: 22 Year
  Sex: Female

DRUGS (3)
  1. PREDNISOLONE [Suspect]
     Indication: HEART AND LUNG TRANSPLANT
  2. AZATHIOPRINE [Suspect]
     Indication: HEART AND LUNG TRANSPLANT
  3. CYCLOSPORINE [Suspect]
     Indication: HEART AND LUNG TRANSPLANT

REACTIONS (7)
  - BRONCHIECTASIS [None]
  - DRUG LEVEL BELOW THERAPEUTIC [None]
  - IMMUNOSUPPRESSANT DRUG LEVEL DECREASED [None]
  - LOWER RESPIRATORY TRACT INFECTION [None]
  - PREGNANCY [None]
  - PULMONARY FUNCTION TEST DECREASED [None]
  - STENOTROPHOMONAS INFECTION [None]
